FAERS Safety Report 19032090 (Version 3)
Quarter: 2021Q2

REPORT INFORMATION
  Report Type: Spontaneous
  Country: US (occurrence: US)
  Receive Date: 20210319
  Receipt Date: 20210531
  Transmission Date: 20210717
  Serious: Yes (Hospitalization)
  Sender: FDA-Public Use
  Company Number: US-NOVOPROD-794502

PATIENT
  Age: 74 Year
  Sex: Female
  Weight: 110.22 kg

DRUGS (2)
  1. LEVEMIR [Suspect]
     Active Substance: INSULIN DETEMIR
     Dosage: 80 IU, QD (DOSE DECREASED)
     Route: 058
  2. LEVEMIR [Suspect]
     Active Substance: INSULIN DETEMIR
     Indication: PRODUCT USED FOR UNKNOWN INDICATION
     Dosage: 105 IU, QD (55 IU IN AM AND 50 IU IN PM)
     Route: 058
     Dates: start: 201910

REACTIONS (3)
  - Blood glucose fluctuation [Unknown]
  - Blood glucose decreased [Not Recovered/Not Resolved]
  - Gastrectomy [Recovered/Resolved]

NARRATIVE: CASE EVENT DATE: 2021
